FAERS Safety Report 5859111-6 (Version None)
Quarter: 2008Q3

REPORT INFORMATION
  Report Type: 
  Country: None (occurrence: None)
  Receive Date: 20080827
  Receipt Date: 20080818
  Transmission Date: 20090109
  Serious: Yes (Hospitalization, Other)
  Sender: FDA-Public Use
  Company Number: PHHY2008FR18731

PATIENT
  Sex: Male

DRUGS (4)
  1. TEGRETOL [Suspect]
     Indication: TRIGEMINAL NEURALGIA
     Dosage: 600 MG, TID
     Route: 048
     Dates: start: 20080216
  2. ZALDIAR [Suspect]
     Indication: TRIGEMINAL NEURALGIA
     Dosage: 2 DOSAGE FORMS
     Route: 048
     Dates: start: 20080216
  3. ASPIRIN [Concomitant]
     Indication: VENOUS THROMBOSIS
     Dosage: 160 MG, QD
     Route: 048
     Dates: end: 20080217
  4. PROSCAR [Concomitant]
     Indication: BENIGN PROSTATIC HYPERPLASIA
     Dosage: 5 MG, QD

REACTIONS (7)
  - B-CELL LYMPHOMA [None]
  - FALL [None]
  - HEAD INJURY [None]
  - LEUKOCYTOSIS [None]
  - LOSS OF CONSCIOUSNESS [None]
  - MALAISE [None]
  - VERTIGO [None]
